FAERS Safety Report 15995121 (Version 3)
Quarter: 2021Q1

REPORT INFORMATION
  Report Type: Report from Study
  Country: FR (occurrence: FR)
  Receive Date: 20190222
  Receipt Date: 20210121
  Transmission Date: 20210419
  Serious: Yes (Hospitalization, Other)
  Sender: FDA-Public Use
  Company Number: FR-BRISTOL-MYERS SQUIBB COMPANY-BMS-2017-108691

PATIENT
  Age: 79 Year
  Sex: Male

DRUGS (1)
  1. NIVOLUMAB [Suspect]
     Active Substance: NIVOLUMAB
     Indication: LUNG NEOPLASM MALIGNANT
     Dosage: 280 MG, EVERY 15 DAYS
     Route: 042
     Dates: start: 20171019, end: 20171102

REACTIONS (5)
  - Pneumomediastinum [Recovered/Resolved]
  - Intracranial pressure increased [Not Recovered/Not Resolved]
  - Decubitus ulcer [Unknown]
  - Lung carcinoma cell type unspecified stage IV [Unknown]
  - Malignant neoplasm progression [Not Recovered/Not Resolved]

NARRATIVE: CASE EVENT DATE: 20171105
